FAERS Safety Report 5018630-5 (Version None)
Quarter: 2006Q2

REPORT INFORMATION
  Report Type: 
  Country: None (occurrence: None)
  Receive Date: 20060414
  Receipt Date: 20051229
  Transmission Date: 20061013
  Serious: No
  Sender: FDA-Public Use
  Company Number: 2005SP004566

PATIENT
  Age: 67 Year
  Sex: Female
  Weight: 68.4932 kg

DRUGS (6)
  1. LUNESTA [Suspect]
     Indication: INSOMNIA
     Dosage: SEE IMAGE
     Route: 048
     Dates: start: 20050501, end: 20050601
  2. LUNESTA [Suspect]
     Indication: INSOMNIA
     Dosage: SEE IMAGE
     Route: 048
     Dates: start: 20050601
  3. SYNTHROID [Concomitant]
  4. CARVEDILOL [Concomitant]
  5. COZAAR [Concomitant]
  6. DEXAMETHASONE TAB [Concomitant]

REACTIONS (5)
  - ABNORMAL SENSATION IN EYE [None]
  - CATARACT [None]
  - DYSGEUSIA [None]
  - INSOMNIA [None]
  - VISION BLURRED [None]
